FAERS Safety Report 9026703 (Version 1)
Quarter: 2012Q4

REPORT INFORMATION
  Report Type: Spontaneous
  Country: US (occurrence: None)
  Receive Date: 20121226
  Receipt Date: 20121226
  Transmission Date: 20130627
  Serious: Yes (Other)
  Sender: FDA-Public Use
  Company Number: 2012033406

PATIENT
  Age: 10 Year
  Sex: Female
  Weight: 40.82 kg

DRUGS (14)
  1. HIZENTRA (IMMUNOGLOBULIN HUMAN NORMAL) [Suspect]
     Indication: CONGENITAL HYPOGAMMAGLOBULINEMIA
     Dosage: (4 g 1x/week, 4 G on 2 sites over 1 to 2 hours, Subcutaneous)
     Route: 058
     Dates: start: 20120914, end: 20120914
  2. HIZENTRA (IMMUNOGLOBULIN HUMAN NORMAL) [Suspect]
     Indication: CONGENITAL HYPOGAMMAGLOBULINEMIA
     Dosage: (4 g 1x/week, 2 sites over 1-2 hours Subcutaneous)
     Route: 058
     Dates: start: 20121209, end: 20121209
  3. HIZENTRA (IMMUNOGLOBULIN HUMAN NORMAL) [Suspect]
     Indication: CONGENITAL HYPOGAMMAGLOBULINEMIA
     Dosage: (4 g 1x/week, Oct-2012 Subcutaneous)
     Route: 058
     Dates: start: 20121209, end: 20121209
  4. HIZENTRA (IMMUNOGLOBULIN HUMAN NORMAL) [Suspect]
     Indication: CONGENITAL HYPOGAMMAGLOBULINEMIA
     Route: 058
  5. EPIPEN (EPINEPHRINE) [Concomitant]
  6. LMX (LIDOCAINE) [Concomitant]
  7. SINGULAIR (MONTELUKAST) 10MG [Concomitant]
  8. ADVAIR (SERETIDE /01420901/) [Concomitant]
  9. DEXTROSE (GLUCOSE), LEVULOSE (FRUCTOSE), PHOSPHORIC ACID [Concomitant]
  10. ALLEGRA (FEXOFENADINE) [Concomitant]
  11. MULTIVITAMIN (DAILY MULTIVITAMIN) [Concomitant]
  12. XOPENEX (LEVOSALBUTAMOL) [Concomitant]
  13. DIPHENHYDRAMINE (DIPHENHYDRAMINE) [Concomitant]
  14. CLARITIN (LORATADINE) [Concomitant]

REACTIONS (16)
  - Infusion site pain [None]
  - Cold sweat [None]
  - Pallor [None]
  - Dizziness [None]
  - Nausea [None]
  - Migraine [None]
  - Vomiting [None]
  - Pain [None]
  - Pharyngeal disorder [None]
  - Productive cough [None]
  - Sputum discoloured [None]
  - Rash [None]
  - Rash [None]
  - Hypersensitivity [None]
  - Visual impairment [None]
  - Headache [None]
